FAERS Safety Report 14377728 (Version 1)
Quarter: 2018Q1

REPORT INFORMATION
  Report Type: Spontaneous
  Country: US (occurrence: US)
  Receive Date: 20180111
  Receipt Date: 20180111
  Transmission Date: 20180509
  Serious: Yes (Other)
  Sender: FDA-Public Use
  Company Number: US-TEVA-2018-US-844155

PATIENT
  Age: 56 Year
  Sex: Male

DRUGS (3)
  1. CARVEDILOL. [Suspect]
     Active Substance: CARVEDILOL
     Indication: HEPATIC CIRRHOSIS
     Dosage: 25 MILLIGRAM DAILY;
     Route: 048
  2. RIFAXIMIN. [Concomitant]
     Active Substance: RIFAXIMIN
     Route: 065
  3. PANTOPRAZOLE [Concomitant]
     Active Substance: PANTOPRAZOLE
     Route: 065

REACTIONS (1)
  - Cardiogenic shock [Recovered/Resolved]
